FAERS Safety Report 24178820 (Version 1)
Quarter: 2024Q3

REPORT INFORMATION
  Report Type: Spontaneous
  Country: CN (occurrence: CN)
  Receive Date: 20240806
  Receipt Date: 20240806
  Transmission Date: 20241016
  Serious: Yes (Hospitalization)
  Sender: PFIZER
  Company Number: CN-PFIZER INC-PV202400101848

PATIENT
  Age: 32 Year
  Sex: Female
  Weight: 42 kg

DRUGS (2)
  1. METHOTREXATE SODIUM [Suspect]
     Active Substance: METHOTREXATE SODIUM
     Indication: Ectopic pregnancy
     Dosage: 70 MG, 1X/DAY
     Route: 030
     Dates: start: 20240728, end: 20240728
  2. MIFEPRISTONE [Concomitant]
     Active Substance: MIFEPRISTONE

REACTIONS (2)
  - Liver injury [Recovering/Resolving]
  - Off label use [Unknown]

NARRATIVE: CASE EVENT DATE: 20240731
